FAERS Safety Report 6290005-0 (Version None)
Quarter: 2009Q3

REPORT INFORMATION
  Report Type: 
  Country: None (occurrence: None)
  Receive Date: 20090730
  Receipt Date: 20081021
  Transmission Date: 20100115
  Serious: No
  Sender: FDA-Public Use
  Company Number: US-BRISTOL-MYERS SQUIBB COMPANY-14378343

PATIENT
  Age: 79 Year
  Sex: Female
  Weight: 73 kg

DRUGS (6)
  1. COUMADIN [Suspect]
     Indication: THROMBOSIS PROPHYLAXIS
     Dosage: 1 DOSAGE FORM = 2.5 MG 5 DAYS ALTERNATING WITH 5 MG 2 DAYS A WEEK.
     Dates: start: 20060101
  2. VYTORIN [Concomitant]
  3. LASIX [Concomitant]
  4. ATENOLOL [Concomitant]
  5. FOLIC ACID [Concomitant]
  6. SYNTHROID [Concomitant]

REACTIONS (2)
  - RASH [None]
  - SWELLING FACE [None]
